FAERS Safety Report 7240537-3 (Version None)
Quarter: 2011Q1

REPORT INFORMATION
  Report Type: 
  Country: None (occurrence: None)
  Receive Date: 20110124
  Receipt Date: 20110111
  Transmission Date: 20110831
  Serious: Yes (Hospitalization, Other)
  Sender: FDA-Public Use
  Company Number: US-ELI_LILLY_AND_COMPANY-US201101003383

PATIENT
  Age: 31 Year
  Sex: Female

DRUGS (2)
  1. OLANZAPINE [Suspect]
     Dosage: 20 MG, DAILY (1/D)
  2. CARBAMAZEPINE [Concomitant]
     Dosage: 200 MG, DAILY (1/D)

REACTIONS (7)
  - DYSPHAGIA [None]
  - PERSECUTORY DELUSION [None]
  - DYSURIA [None]
  - URINARY HESITATION [None]
  - DRUG SCREEN POSITIVE [None]
  - NEUROLEPTIC MALIGNANT SYNDROME [None]
  - FIBROMYALGIA [None]
